FAERS Safety Report 4663660-6 (Version None)
Quarter: 2005Q2

REPORT INFORMATION
  Report Type: 
  Country: None (occurrence: None)
  Receive Date: 20050511
  Receipt Date: 20050322
  Transmission Date: 20051028
  Serious: Yes (Other)
  Sender: FDA-Public Use
  Company Number: 399620

PATIENT
  Age: 53 Year
  Sex: Female
  Weight: 54.4 kg

DRUGS (2)
  1. PEGASYS [Suspect]
     Indication: HEPATITIS C
     Dosage: 1 DOSE FORM 1 PER WEEK SUBCUTANEOUS
     Route: 058
     Dates: start: 20050211
  2. RIBAVIRIN [Suspect]
     Indication: HEPATITIS C
     Dosage: DOSE FORM DAILY ORAL
     Route: 048
     Dates: start: 20050211

REACTIONS (10)
  - ANOREXIA [None]
  - BRONCHITIS [None]
  - COUGH [None]
  - DYSPNOEA [None]
  - FATIGUE [None]
  - NAUSEA [None]
  - PNEUMONIA [None]
  - PYREXIA [None]
  - VOMITING [None]
  - WHEEZING [None]
